APPROVED DRUG PRODUCT: OPFOLDA
Active Ingredient: MIGLUSTAT
Strength: 65MG
Dosage Form/Route: CAPSULE;ORAL
Application: N215211 | Product #001
Applicant: AMICUS THERAPEUTICS US LLC
Approved: Sep 28, 2023 | RLD: Yes | RS: Yes | Type: RX

PATENTS:
Patent 12419937 | Expires: Mar 7, 2033
Patent 12414985 | Expires: Dec 29, 2036
Patent 12246062 | Expires: Sep 16, 2038
Patent 11753632 | Expires: Sep 30, 2035
Patent 11278601 | Expires: Dec 29, 2036
Patent 11278599 | Expires: Mar 7, 2033
Patent 10961522 | Expires: Sep 30, 2035
Patent 10857212 | Expires: Aug 12, 2037
Patent 10512677 | Expires: Mar 7, 2033
Patent 10208299 | Expires: Sep 30, 2035

EXCLUSIVITY:
Code: NP | Date: Sep 28, 2026